FAERS Safety Report 5875039-X (Version None)
Quarter: 2008Q3

REPORT INFORMATION
  Report Type: 
  Country: None (occurrence: None)
  Receive Date: 20080909
  Receipt Date: 20080828
  Transmission Date: 20090109
  Serious: Yes (Life-Threatening)
  Sender: FDA-Public Use
  Company Number: US-BAYER-200813579BCC

PATIENT
  Age: 59 Year
  Sex: Male

DRUGS (22)
  1. ASPIRIN [Suspect]
     Indication: CARDIOVASCULAR EVENT PROPHYLAXIS
     Dosage: TOTAL DAILY DOSE: 325 MG  UNIT DOSE: 325 MG
     Route: 048
     Dates: start: 20080519, end: 20080528
  2. E5564/PLACEBO [Suspect]
     Indication: SEPSIS
     Route: 042
     Dates: start: 20080507
  3. E5564/PLACEBO [Suspect]
     Route: 042
     Dates: start: 20080508
  4. E5564/PLACEBO [Suspect]
     Route: 042
     Dates: start: 20080508, end: 20080512
  5. HEPARIN [Suspect]
     Indication: THROMBOSIS PROPHYLAXIS
     Dosage: TOTAL DAILY DOSE: 15000 U  UNIT DOSE: 5000 U
     Route: 058
     Dates: start: 20080519, end: 20080603
  6. HYDROCORTISONE [Concomitant]
  7. METRONIDAZOLE [Concomitant]
  8. AZITHROMYCIN [Concomitant]
  9. VANCOMYCIN HYDROCHLORIDE [Concomitant]
  10. PIPERACILLIN SODIUM AND TAZOBACTAM SODIUM [Concomitant]
  11. CALCIUM CHLORIDE [Concomitant]
  12. ALBUMIN (HUMAN) [Concomitant]
  13. ACETAMINOPHEN [Concomitant]
  14. CALCIUM GLUCONATE [Concomitant]
  15. SODIUM BICARBONATE [Concomitant]
  16. PANTOPRAZOLE [Concomitant]
  17. FENTANYL [Concomitant]
  18. MIDAZOLAM HCL [Concomitant]
  19. METOPROLOL TARTRATE [Concomitant]
  20. NASONEX [Concomitant]
  21. NULYTELY [Concomitant]
  22. DULCOLAX [Concomitant]

REACTIONS (3)
  - ATRIAL FIBRILLATION [None]
  - GASTROINTESTINAL HAEMORRHAGE [None]
  - LARGE INTESTINAL ULCER HAEMORRHAGE [None]
